FAERS Safety Report 10063582 (Version 1)
Quarter: 2014Q2

REPORT INFORMATION
  Report Type: Report from Study
  Country: ES (occurrence: ES)
  Receive Date: 20140407
  Receipt Date: 20140407
  Transmission Date: 20141212
  Serious: Yes (Other)
  Sender: FDA-Public Use
  Company Number: ES-009507513-1404ESP001635

PATIENT
  Age: 57 Year
  Sex: Male

DRUGS (1)
  1. VICTRELIS [Suspect]
     Route: 065
     Dates: start: 20120626

REACTIONS (1)
  - Lymphopenia [Recovered/Resolved]
